FAERS Safety Report 6483656-1 (Version None)
Quarter: 2009Q4

REPORT INFORMATION
  Report Type: 
  Country: None (occurrence: None)
  Receive Date: 20091209
  Receipt Date: 20091130
  Transmission Date: 20100525
  Serious: Yes (Hospitalization, Other)
  Sender: FDA-Public Use
  Company Number: PHHY2009KW52710

PATIENT
  Age: 34 Year
  Sex: Male

DRUGS (5)
  1. CYCLOSPORINE [Suspect]
     Indication: RENAL TRANSPLANT
  2. COLCHICINE [Concomitant]
     Dosage: 0.5 MG ONCE DAILY
  3. ANTI-THYMOCYTE GLOBULIN NOS [Concomitant]
     Indication: RENAL TRANSPLANT
  4. MYCOPHENOLATE MOFETIL [Concomitant]
     Indication: RENAL TRANSPLANT
  5. PREDNISOLONE [Concomitant]
     Indication: RENAL TRANSPLANT
     Dosage: 5 MG DAILY

REACTIONS (11)
  - ABDOMINAL PAIN [None]
  - ARTHRALGIA [None]
  - CONCOMITANT DISEASE AGGRAVATED [None]
  - DIARRHOEA [None]
  - FAMILIAL MEDITERRANEAN FEVER [None]
  - HAEMATURIA [None]
  - MYALGIA [None]
  - MYOPATHY TOXIC [None]
  - PLEURITIC PAIN [None]
  - PROTEINURIA [None]
  - PYREXIA [None]
